FAERS Safety Report 7628357-9 (Version None)
Quarter: 2011Q3

REPORT INFORMATION
  Report Type: 
  Country: None (occurrence: None)
  Receive Date: 20110722
  Receipt Date: 20110720
  Transmission Date: 20111222
  Serious: No
  Sender: FDA-Public Use
  Company Number: US-BAYER-2011-063283

PATIENT
  Sex: Female

DRUGS (2)
  1. MIRENA [Suspect]
     Indication: MENORRHAGIA
     Dosage: UNK
     Route: 015
     Dates: start: 20050401, end: 20100401
  2. MIRENA [Suspect]
     Dosage: UNK
     Route: 015
     Dates: start: 20100401

REACTIONS (1)
  - AMENORRHOEA [None]
